FAERS Safety Report 8439133-1 (Version None)
Quarter: 2012Q2

REPORT INFORMATION
  Report Type: 
  Country: None (occurrence: None)
  Receive Date: 20120615
  Receipt Date: 20120604
  Transmission Date: 20120825
  Serious: Yes (Other)
  Sender: FDA-Public Use
  Company Number: ZA-PFIZER INC-2012143198

PATIENT
  Age: 52 Year
  Sex: Female

DRUGS (3)
  1. BUSCOPAN [Concomitant]
     Indication: OESOPHAGOGASTRIC FUNDOPLASTY
     Dosage: UNK
     Route: 048
  2. LIBRAX [Concomitant]
     Indication: OESOPHAGOGASTRIC FUNDOPLASTY
     Dosage: ONE TABLET 2X/DAY
     Route: 048
  3. VARENICLINE TARTRATE [Suspect]
     Dosage: UNK
     Route: 048
     Dates: start: 20120528

REACTIONS (1)
  - HAEMATOCHEZIA [None]
